FAERS Safety Report 20770483 (Version 2)
Quarter: 2022Q2

REPORT INFORMATION
  Report Type: Spontaneous
  Country: US (occurrence: US)
  Receive Date: 20220429
  Receipt Date: 20220518
  Transmission Date: 20220721
  Serious: Yes (Other)
  Sender: FDA-Public Use
  Company Number: US-AMGEN-USASP2022071066

PATIENT
  Sex: Female

DRUGS (5)
  1. REPATHA [Suspect]
     Active Substance: EVOLOCUMAB
     Indication: Hypercholesterolaemia
     Dosage: 140 MILLIGRAM, Q2WK
     Route: 065
  2. ABILIFY [Concomitant]
     Active Substance: ARIPIPRAZOLE
     Dosage: 300 MILLIGRAM, QMO
     Route: 065
  3. ABILIFY [Concomitant]
     Active Substance: ARIPIPRAZOLE
     Route: 065
  4. FISH OIL [Concomitant]
     Active Substance: FISH OIL
     Dosage: 100 MILLIGRAM
     Route: 065
  5. ZINC [Concomitant]
     Active Substance: ZINC
     Dosage: CUTS ZINC IN HALF AND TAKES 25MILLIGRAM, QOD
     Route: 065

REACTIONS (8)
  - Schizophrenia [Unknown]
  - Blood cholesterol increased [Not Recovered/Not Resolved]
  - Sneezing [Unknown]
  - Product storage error [Unknown]
  - Blood glucose increased [Unknown]
  - Hypertension [Unknown]
  - Injection site bruising [Recovered/Resolved]
  - Back pain [Recovering/Resolving]
